FAERS Safety Report 7324857-X (Version None)
Quarter: 2011Q1

REPORT INFORMATION
  Report Type: 
  Country: None (occurrence: None)
  Receive Date: 20110301
  Receipt Date: 20110217
  Transmission Date: 20110831
  Serious: Yes (Hospitalization)
  Sender: FDA-Public Use
  Company Number: FR-GENENTECH-276013

PATIENT
  Sex: Female

DRUGS (13)
  1. RITUXIMAB [Suspect]
     Dosage: 566 MG, UNK
     Route: 042
     Dates: start: 20081215
  2. CARBOPLATIN [Concomitant]
     Dosage: 552 MG, UNK
     Route: 042
     Dates: start: 20080729
  3. CYTARABINE [Concomitant]
     Indication: LYMPHOMA
     Dosage: 6440 MG, UNK
     Route: 042
     Dates: start: 20080527
  4. CARBOPLATIN [Concomitant]
     Dosage: 552.35 MG, UNK
     Route: 042
     Dates: start: 20080617
  5. CARBOPLATIN [Concomitant]
     Dosage: 552.35 MG, UNK
     Route: 042
     Dates: start: 20080708
  6. CYTARABINE [Concomitant]
     Dosage: 3000 MG, UNK
     Route: 042
     Dates: start: 20080708
  7. CYTARABINE [Concomitant]
     Dosage: 3000 MG, UNK
     Route: 042
     Dates: start: 20080729
  8. RITUXIMAB [Suspect]
     Dosage: 603.75 MG, UNK
     Route: 042
     Dates: start: 20080708
  9. CARBOPLATIN [Concomitant]
     Indication: LYMPHOMA
     Dosage: 552.35 MG, UNK
     Route: 042
     Dates: start: 20080527
  10. CYTARABINE [Concomitant]
     Dosage: 4000 MG, UNK
     Route: 042
     Dates: start: 20080617
  11. RITUXIMAB [Suspect]
     Indication: LYMPHOMA
     Dosage: 603.75 MG, UNK
     Route: 042
     Dates: start: 20080527
  12. RITUXIMAB [Suspect]
     Dosage: 603.75 MG, UNK
     Route: 042
     Dates: start: 20080617
  13. RITUXIMAB [Suspect]
     Dosage: 603.75 MG, UNK
     Route: 042
     Dates: start: 20080729

REACTIONS (5)
  - PLATELET COUNT DECREASED [None]
  - DYSPEPSIA [None]
  - HAEMATOTOXICITY [None]
  - LYMPHOCYTE COUNT DECREASED [None]
  - HAEMOGLOBIN DECREASED [None]
